FAERS Safety Report 6295377-9 (Version None)
Quarter: 2009Q3

REPORT INFORMATION
  Report Type: 
  Country: None (occurrence: None)
  Receive Date: 20090803
  Receipt Date: 20090727
  Transmission Date: 20100115
  Serious: Yes (Hospitalization)
  Sender: FDA-Public Use
  Company Number: US-AMGEN-QUU356388

PATIENT
  Sex: Female
  Weight: 95.3 kg

DRUGS (3)
  1. ENBREL [Suspect]
     Indication: RHEUMATOID ARTHRITIS
     Route: 058
     Dates: start: 20001117
  2. METHOTREXATE [Concomitant]
  3. PLAQUENIL [Concomitant]

REACTIONS (3)
  - ABDOMINAL PAIN [None]
  - BLOOD AMYLASE INCREASED [None]
  - CHOLECYSTECTOMY [None]
